FAERS Safety Report 8797831 (Version 1)
Quarter: 2012Q4

REPORT INFORMATION
  Report Type: Spontaneous
  Country: US (occurrence: None)
  Receive Date: 20120917
  Receipt Date: 20120917
  Transmission Date: 20130627
  Serious: Yes (Other)
  Sender: FDA-Public Use
  Company Number: None

PATIENT
  Age: 62 Year
  Sex: Male
  Weight: 83.92 kg

DRUGS (2)
  1. ZANAFLEX [Suspect]
     Indication: MUSCLE TIGHTNESS
     Route: 048
     Dates: start: 20120907
  2. ZANAFLEX [Suspect]
     Indication: MUSCLE TIGHTNESS
     Route: 048
     Dates: start: 20120914

REACTIONS (1)
  - Erectile dysfunction [None]
